FAERS Safety Report 20759772 (Version 2)
Quarter: 2023Q4

REPORT INFORMATION
  Report Type: Spontaneous
  Country: US (occurrence: US)
  Receive Date: 20220427
  Receipt Date: 20231213
  Transmission Date: 20240110
  Serious: No
  Sender: FDA-Public Use
  Company Number: US-PFIZER INC-202101639069

PATIENT
  Age: 83 Year
  Sex: Female
  Weight: 48.53 kg

DRUGS (2)
  1. LEVOXYL [Suspect]
     Active Substance: LEVOTHYROXINE SODIUM
     Indication: Thyroid disorder
     Dosage: 1 TABLET A DAY AND 2 ON SUNDAY, 8 TABLETS A WEEK
     Dates: start: 20211003
  2. LEVOXYL [Suspect]
     Active Substance: LEVOTHYROXINE SODIUM
     Dosage: 7 TABLETS A WEEK

REACTIONS (3)
  - Alopecia [Unknown]
  - Alopecia [Unknown]
  - Blood thyroid stimulating hormone increased [Unknown]

NARRATIVE: CASE EVENT DATE: 20210101
